FAERS Safety Report 14512212 (Version 6)
Quarter: 2018Q4

REPORT INFORMATION
  Report Type: Report from Study
  Country: FR (occurrence: FR)
  Receive Date: 20180209
  Receipt Date: 20181129
  Transmission Date: 20190204
  Serious: Yes (Hospitalization, Other)
  Sender: FDA-Public Use
  Company Number: FR-BRISTOL-MYERS SQUIBB COMPANY-BMS-2018-010677

PATIENT
  Age: 79 Year
  Sex: Male

DRUGS (1)
  1. NIVOLUMAB [Suspect]
     Active Substance: NIVOLUMAB
     Indication: LUNG NEOPLASM MALIGNANT
     Dosage: 228 MG, Q2WK
     Route: 042
     Dates: start: 20170704, end: 20180605

REACTIONS (7)
  - General physical health deterioration [Recovering/Resolving]
  - Urinary retention [Unknown]
  - Malignant neoplasm progression [Not Recovered/Not Resolved]
  - Drug-induced liver injury [Unknown]
  - Walking disability [Unknown]
  - Aspergillus infection [Recovering/Resolving]
  - Muscular weakness [Unknown]

NARRATIVE: CASE EVENT DATE: 20180122
